FAERS Safety Report 7678727-8 (Version None)
Quarter: 2011Q3

REPORT INFORMATION
  Report Type: 
  Country: None (occurrence: None)
  Receive Date: 20110811
  Receipt Date: 20110802
  Transmission Date: 20111222
  Serious: Yes (Hospitalization)
  Sender: FDA-Public Use
  Company Number: GB-ASTRAZENECA-2011SE46033

PATIENT
  Age: 68 Year
  Sex: Male

DRUGS (25)
  1. HALOPERIDOL [Suspect]
     Indication: DELUSION
     Route: 030
     Dates: start: 20110718, end: 20110719
  2. ASPIRIN [Concomitant]
  3. DIAZEPAM [Concomitant]
  4. MIRTAZAPINE [Concomitant]
  5. MOVIPREP [Concomitant]
  6. PHOSPHATE ION [Concomitant]
     Route: 054
  7. PROMETHAZINE HYDROCHLORIDE [Concomitant]
  8. RAMIPRIL [Concomitant]
  9. SIMVASTATIN [Concomitant]
  10. HALOPERIDOL [Suspect]
     Indication: EMOTIONAL DISTRESS
     Route: 030
     Dates: start: 20110718, end: 20110719
  11. OLANZAPINE [Suspect]
     Indication: ANXIETY
     Route: 023
     Dates: start: 20110519, end: 20110719
  12. PROPRANOLOL [Concomitant]
  13. HALOPERIDOL [Suspect]
     Indication: ANXIETY
     Route: 030
     Dates: start: 20110718, end: 20110719
  14. GLYCEROL 2.6% [Concomitant]
     Route: 054
  15. ACETAMINOPHEN [Concomitant]
  16. AUGMENTIN '125' [Concomitant]
  17. LEVOTHYROXINE SODIUM [Concomitant]
  18. LORAZEPAM [Concomitant]
  19. VENLAFAXINE [Concomitant]
  20. OLANZAPINE [Suspect]
     Indication: EMOTIONAL DISTRESS
     Route: 023
     Dates: start: 20110519, end: 20110719
  21. AMLODIPINE [Concomitant]
  22. LANSOPRAZOLE [Concomitant]
  23. PROCYCLIDINE HYDROCHLORIDE [Concomitant]
  24. QUETIAPINE [Suspect]
     Indication: DELUSION
     Route: 048
     Dates: start: 20110718, end: 20110719
  25. QUETIAPINE [Suspect]
     Indication: ANXIETY
     Route: 048
     Dates: start: 20110718, end: 20110719

REACTIONS (5)
  - NEUROLEPTIC MALIGNANT SYNDROME [None]
  - BLOOD CREATINE PHOSPHOKINASE INCREASED [None]
  - MUSCULOSKELETAL STIFFNESS [None]
  - PYREXIA [None]
  - CONFUSIONAL STATE [None]
